FAERS Safety Report 13877622 (Version 1)
Quarter: 2017Q3

REPORT INFORMATION
  Report Type: Spontaneous
  Country: BR (occurrence: BR)
  Receive Date: 20170817
  Receipt Date: 20170817
  Transmission Date: 20171127
  Serious: Yes (Other)
  Sender: FDA-Public Use
  Company Number: BR-009507513-1708BRA006305

PATIENT
  Age: 76 Year
  Sex: Female
  Weight: 46 kg

DRUGS (9)
  1. CALCIUM (UNSPECIFIED) (+) VITAMIN D (UNSPECIFIED) [Concomitant]
     Active Substance: CALCIUM CARBONATE\VITAMIN D
     Indication: OSTEOPOROSIS
     Dosage: 1 TABLET IN THE MORNING AND AT NIGHT
     Route: 048
  2. THIOCTACID [Concomitant]
     Active Substance: THIOCTIC ACID
     Indication: THROMBOSIS PROPHYLAXIS
     Dosage: 60 MG (TABLET) , QD
     Route: 048
  3. ARADOIS [Concomitant]
     Active Substance: LOSARTAN POTASSIUM
     Indication: HYPERTENSION
     Dosage: 1 TABLET IN THE MORNING AND AT NIGHT
     Route: 048
  4. JANUMET [Suspect]
     Active Substance: METFORMIN HYDROCHLORIDE\SITAGLIPTIN PHOSPHATE
     Dosage: 50/850 MG (1 TABLET), 1 TABLET AFTER LUNCH AND 1 TABLET AFTER DINNER
     Route: 048
     Dates: start: 2012
  5. DIAMICRON [Concomitant]
     Active Substance: GLICLAZIDE
     Dosage: 1 TABLET BEFORE BREAKFAST
     Route: 048
     Dates: start: 2012
  6. ARADOIS [Concomitant]
     Active Substance: LOSARTAN POTASSIUM
     Dosage: 1 TABLET IN THE MORNING AND AT NIGHT
     Route: 048
  7. CALCIUM (UNSPECIFIED) (+) VITAMIN D (UNSPECIFIED) [Concomitant]
     Active Substance: CALCIUM CARBONATE\VITAMIN D
     Dosage: 1 TABLET IN THE MORNING AND AT NIGHT
     Route: 048
  8. MILGAMMA NA [Concomitant]
     Indication: VITAMIN SUPPLEMENTATION
     Dosage: UNK
  9. FOSAMAX PLUS D [Suspect]
     Active Substance: ALENDRONATE SODIUM\CHOLECALCIFEROL
     Indication: OSTEOPOROSIS
     Dosage: 70/5600MG  (TABLET), ONCE A WEEK
     Route: 048

REACTIONS (9)
  - Malaise [Recovered/Resolved]
  - Vomiting [Recovered/Resolved]
  - Urinary tract infection [Not Recovered/Not Resolved]
  - Hyperglycaemia [Not Recovered/Not Resolved]
  - Musculoskeletal pain [Not Recovered/Not Resolved]
  - Diabetic metabolic decompensation [Not Recovered/Not Resolved]
  - Dizziness [Recovered/Resolved]
  - Musculoskeletal pain [Not Recovered/Not Resolved]
  - Fall [Unknown]

NARRATIVE: CASE EVENT DATE: 2013
